FAERS Safety Report 18537696 (Version 1)
Quarter: 2020Q4

REPORT INFORMATION
  Report Type: Spontaneous
  Country: US (occurrence: US)
  Receive Date: 20201124
  Receipt Date: 20201124
  Transmission Date: 20210114
  Serious: No
  Sender: FDA-Public Use
  Company Number: US-BIOVITRUM-2020US6658

PATIENT
  Sex: Male
  Weight: 11 kg

DRUGS (4)
  1. SYNAGIS [Suspect]
     Active Substance: PALIVIZUMAB
     Indication: PRODUCT USED FOR UNKNOWN INDICATION
     Dosage: SYNAGIS 50MG/0.5ML VL LIQUID
     Route: 030
  2. SPIRONOLACTONE 100 % POWDER [Concomitant]
  3. EPINEPHRINE HCL [Concomitant]
     Active Substance: EPINEPHRINE
  4. POLY-VI-SOL 750-35/ML DROPS [Concomitant]

REACTIONS (1)
  - Weight decreased [Unknown]
